FAERS Safety Report 5661647-8 (Version None)
Quarter: 2008Q1

REPORT INFORMATION
  Report Type: 
  Country: None (occurrence: None)
  Receive Date: 20080312
  Receipt Date: 20080310
  Transmission Date: 20080703
  Serious: Yes (Other)
  Sender: FDA-Public Use
  Company Number: ES-BRISTOL-MYERS SQUIBB COMPANY-14109904

PATIENT
  Age: 59 Year
  Sex: Female

DRUGS (1)
  1. APROVEL FILM-COATED TABS 150 MG [Suspect]
     Indication: HYPERTENSION
     Route: 048
     Dates: start: 20071120, end: 20071220

REACTIONS (2)
  - DIARRHOEA [None]
  - FAECAL INCONTINENCE [None]
